FAERS Safety Report 6598751-6 (Version None)
Quarter: 2010Q1

REPORT INFORMATION
  Report Type: 
  Country: None (occurrence: None)
  Receive Date: 20100224
  Receipt Date: 20100210
  Transmission Date: 20100710
  Serious: Yes (Hospitalization)
  Sender: FDA-Public Use
  Company Number: FR-CELGENEUS-056-50794-10020790

PATIENT
  Age: 78 Year
  Sex: Female

DRUGS (1)
  1. VIDAZA [Suspect]
     Route: 058
     Dates: start: 20091013

REACTIONS (1)
  - NEUROPATHY PERIPHERAL [None]
